FAERS Safety Report 21688633 (Version 1)
Quarter: 2022Q4

REPORT INFORMATION
  Report Type: Spontaneous
  Country: US (occurrence: None)
  Receive Date: 20221205
  Receipt Date: 20221205
  Transmission Date: 20230113
  Serious: No
  Sender: FDA-Public Use
  Company Number: None

PATIENT
  Sex: Female

DRUGS (1)
  1. TALTZ [Suspect]
     Active Substance: IXEKIZUMAB
     Indication: Ankylosing spondylitis
     Route: 042
     Dates: start: 20220628

REACTIONS (4)
  - Therapeutic product effect incomplete [None]
  - Therapeutic response shortened [None]
  - Bedridden [None]
  - Insomnia [None]
